FAERS Safety Report 4983980-5 (Version None)
Quarter: 2006Q1

REPORT INFORMATION
  Report Type: 
  Country: None (occurrence: None)
  Receive Date: 20060301
  Receipt Date: 20051129
  Transmission Date: 20060701
  Serious: No
  Sender: FDA-Public Use
  Company Number: S05-USA-05104-01

PATIENT
  Sex: Male

DRUGS (2)
  1. NAMENDA [Suspect]
     Indication: CARDIAC ARREST
     Dates: start: 20051101
  2. NAMENDA [Suspect]
     Indication: DEMENTIA
     Dates: start: 20051101

REACTIONS (1)
  - DIARRHOEA [None]
